FAERS Safety Report 16653439 (Version 1)
Quarter: 2019Q3

REPORT INFORMATION
  Report Type: Spontaneous
  Country: ES (occurrence: ES)
  Receive Date: 20190731
  Receipt Date: 20190731
  Transmission Date: 20191004
  Serious: Yes (Death, Congenital Anomaly)
  Sender: FDA-Public Use
  Company Number: ES-TEVA-2019-ES-1085506

PATIENT
  Sex: Male

DRUGS (4)
  1. COPAXONE [Suspect]
     Active Substance: GLATIRAMER ACETATE
     Indication: RELAPSING-REMITTING MULTIPLE SCLEROSIS
     Dosage: 1 INJ, 3 DAYS / WEEK. COPAXONE 40: 1 SUBCUTANEOUS INJECTION 3 TIMES A WEEK (MONDAY, WEDNESDAY AND FR
     Route: 058
     Dates: start: 201707, end: 201806
  2. SYMBICORT TURBUHALER 160 MICROGRAMOS/4,5 MICROGRAMOS/INHALACION  POLVO [Concomitant]
     Route: 055
  3. VENTOLIN [Concomitant]
     Active Substance: ALBUTEROL SULFATE
     Route: 055
  4. ACIDO FOLICO 5 MG 28 COMPRIMIDOS [Concomitant]
     Dosage: 5 MG
     Route: 048

REACTIONS (2)
  - Spina bifida [Not Recovered/Not Resolved]
  - Foetal exposure during pregnancy [Recovered/Resolved]

NARRATIVE: CASE EVENT DATE: 2018
